FAERS Safety Report 10680662 (Version 2)
Quarter: 2015Q4

REPORT INFORMATION
  Report Type: Spontaneous
  Country: US (occurrence: US)
  Receive Date: 20141229
  Receipt Date: 20151228
  Transmission Date: 20160304
  Serious: Yes (Hospitalization)
  Sender: FDA-Public Use
  Company Number: US-SA-2014SA118895

PATIENT
  Age: 82 Year
  Sex: Male

DRUGS (16)
  1. MS CONTIN [Concomitant]
     Active Substance: MORPHINE SULFATE
     Dosage: TAKE 1 TAB BY MOUTH EVERY 12 HOURS
     Route: 048
  2. LEVAQUIN [Concomitant]
     Active Substance: LEVOFLOXACIN
     Dosage: TAKE ONE TABLET BY MOUTH ONCE PER DAY
     Route: 048
  3. SIMVASTATIN. [Concomitant]
     Active Substance: SIMVASTATIN
     Route: 048
  4. NITROSTAT [Concomitant]
     Active Substance: NITROGLYCERIN
  5. FENTANYL. [Concomitant]
     Active Substance: FENTANYL
     Dosage: FEMTANYL PATCH 12 (12.5) MCG/HR?12.5MCG EVERY 3 DAYS
  6. LUPRON [Concomitant]
     Active Substance: LEUPROLIDE ACETATE
     Dosage: 30MG IM KIT?INJECT 1.5ML INTO THE MUSCLE ONCE.
     Route: 030
  7. PLAVIX [Suspect]
     Active Substance: CLOPIDOGREL BISULFATE
     Indication: PROPHYLAXIS
     Route: 048
     Dates: start: 20090214, end: 20090217
  8. VITAMIN D [Concomitant]
     Active Substance: CHOLECALCIFEROL
     Route: 048
  9. LIPITOR [Concomitant]
     Active Substance: ATORVASTATIN CALCIUM
     Dosage: TAKE 2 TABLETS BY MOUTH EVERY DAY
     Route: 048
  10. VICODIN [Concomitant]
     Active Substance: ACETAMINOPHEN\HYDROCODONE BITARTRATE
     Dosage: 5-500MG?TAKE 1-2 TABLET BY MOUTH EVERY 6 HOURS AS NEEDED
     Route: 048
  11. NIACIN. [Concomitant]
     Active Substance: NIACIN
     Dosage: TAKE 1 TAB BY MOUTH WITH EACH MEAL
     Route: 048
  12. ASPIRIN. [Concomitant]
     Active Substance: ASPIRIN
     Route: 048
  13. AVAPRO [Concomitant]
     Active Substance: IRBESARTAN
     Indication: CARDIAC DISORDER
     Dosage: 75MG PO TABLET?TAKE 1 TABLET BY MOUTH ONCE PER DAY FOR HEART
     Route: 048
  14. PLAVIX [Suspect]
     Active Substance: CLOPIDOGREL BISULFATE
     Indication: PROPHYLAXIS
     Route: 048
  15. SENOKOT-S [Concomitant]
     Active Substance: DOCUSATE SODIUM\SENNOSIDES
     Dosage: TAKE 1-2 TABS BY MOUTH EVERY NIGHT AT BEDTIME AS NEEDED
     Route: 048
  16. METOPROLOL SUCCINATE. [Concomitant]
     Active Substance: METOPROLOL SUCCINATE
     Dosage: TAKE 50MG BY MOUTH EVERY DAY WITH BREAKFAST
     Route: 048

REACTIONS (1)
  - Haemorrhage [Unknown]
